FAERS Safety Report 8795218 (Version 3)
Quarter: 2012Q4

REPORT INFORMATION
  Report Type: Report from Study
  Country: TW (occurrence: TW)
  Receive Date: 20120917
  Receipt Date: 20121231
  Transmission Date: 20130627
  Serious: Yes (Death, Hospitalization)
  Sender: FDA-Public Use
  Company Number: TW-CELGENEUS-153-CCAZA-12082573

PATIENT
  Age: 64 Year
  Sex: Male
  Weight: 56 kg

DRUGS (12)
  1. AZACITIDINE INJECTABLE [Suspect]
     Indication: MYELODYSPLASTIC SYNDROME
     Dosage: 75 milligram/sq. meter
     Route: 058
     Dates: start: 20120809, end: 20120815
  2. AZACITIDINE INJECTABLE [Suspect]
     Route: 058
     Dates: end: 20120908
  3. SPIRONOLACTONE [Concomitant]
     Indication: OEDEMA
     Dosage: 25 Milligram
     Route: 048
     Dates: start: 20120530, end: 20120820
  4. COLCHICIN [Concomitant]
     Indication: GOUT
     Dosage: .5 Milligram
     Route: 048
     Dates: start: 20120528, end: 20120820
  5. METOCLOPRAMIDE [Concomitant]
     Indication: ANTIEMETIC SUPPORTIVE CARE
     Dosage: 15 Milligram
     Route: 048
     Dates: start: 20120526, end: 20120820
  6. FUROSEMIDE [Concomitant]
     Indication: OEDEMA
     Dosage: 20 Milligram
     Route: 048
     Dates: start: 20120530, end: 20120820
  7. MEDROXYPROGESTERONE [Concomitant]
     Indication: ANOREXIA POST CHEMOTHERAPY
     Dosage: 500 Milligram
     Route: 048
     Dates: start: 20120816, end: 20120820
  8. DIMETHYLPOLYSILOXANE [Concomitant]
     Indication: FLATULENCE
     Dosage: 80 Milligram
     Route: 048
     Dates: start: 20120604, end: 20120820
  9. HYDROCORTISONE [Concomitant]
     Indication: ALLERGY PROPHYLAXIS
     Route: 041
     Dates: start: 20120816, end: 20120816
  10. HYDROCORTISONE [Concomitant]
     Indication: SEPTIC SHOCK
     Dosage: 200 Milligram
     Route: 041
     Dates: start: 20120820, end: 20120825
  11. HYDROCORTISONE [Concomitant]
     Route: 041
     Dates: start: 20120908, end: 20120908
  12. DIPHENHYDRAMINE [Concomitant]
     Indication: ALLERGY PROPHYLAXIS
     Route: 041
     Dates: start: 20120816, end: 20120816

REACTIONS (4)
  - Pancytopenia [Not Recovered/Not Resolved]
  - Septic shock [Fatal]
  - Febrile neutropenia [Not Recovered/Not Resolved]
  - Cellulitis [Not Recovered/Not Resolved]
